FAERS Safety Report 9638437 (Version 1)
Quarter: 2013Q4

REPORT INFORMATION
  Report Type: Spontaneous
  Country: US (occurrence: None)
  Receive Date: 20131021
  Receipt Date: 20131021
  Transmission Date: 20140711
  Serious: Yes (Other)
  Sender: FDA-Public Use
  Company Number: None

PATIENT
  Age: 39 Year
  Sex: Female

DRUGS (1)
  1. BUPIVACAINE\DEXTROSE [Suspect]
     Indication: SPINAL ANAESTHESIA
     Dosage: TITRATE
     Dates: start: 20130918, end: 20130918

REACTIONS (1)
  - Inadequate analgesia [None]
